FAERS Safety Report 7628672-9 (Version None)
Quarter: 2011Q3

REPORT INFORMATION
  Report Type: 
  Country: None (occurrence: None)
  Receive Date: 20110721
  Receipt Date: 20110721
  Transmission Date: 20111222
  Serious: Yes (Disabling)
  Sender: FDA-Public Use
  Company Number: None

PATIENT
  Age: 72 Year
  Sex: Female
  Weight: 50 kg

DRUGS (1)
  1. XYLOCAINE W/ EPINEPHRENE [Suspect]
     Indication: EUSTACHIAN TUBE DYSFUNCTION
     Dosage: INJECTION INTO EAR EPINEPHRINE INJECTION INTO EAR
     Dates: start: 20091002

REACTIONS (1)
  - DEAFNESS [None]
